FAERS Safety Report 18674878 (Version 1)
Quarter: 2020Q4

REPORT INFORMATION
  Report Type: Spontaneous
  Country: US (occurrence: US)
  Receive Date: 20201228
  Receipt Date: 20201228
  Transmission Date: 20210114
  Serious: No
  Sender: FDA-Public Use
  Company Number: None

PATIENT
  Age: 60 Year
  Sex: Female
  Weight: 108 kg

DRUGS (9)
  1. ATENOLOL. [Concomitant]
     Active Substance: ATENOLOL
  2. LANTUS [Concomitant]
     Active Substance: INSULIN GLARGINE
  3. TRULICITY [Concomitant]
     Active Substance: DULAGLUTIDE
  4. NEURENTIN [Concomitant]
  5. TRULICITY [Suspect]
     Active Substance: DULAGLUTIDE
     Indication: TYPE 2 DIABETES MELLITUS
     Dosage: ?          QUANTITY:4 INJECTION(S);OTHER FREQUENCY:WEEKLY;?
     Route: 058
     Dates: start: 20201216, end: 20201223
  6. LISINOPRIL. [Concomitant]
     Active Substance: LISINOPRIL
  7. 50 + MULTIVITAMINS [Concomitant]
  8. METFORMIN [Concomitant]
     Active Substance: METFORMIN HYDROCHLORIDE
  9. FISH OIL [Concomitant]
     Active Substance: FISH OIL

REACTIONS (2)
  - Injection site erythema [None]
  - Injection site pruritus [None]

NARRATIVE: CASE EVENT DATE: 20201223
